FAERS Safety Report 5955184-0 (Version None)
Quarter: 2008Q4

REPORT INFORMATION
  Report Type: 
  Country: None (occurrence: None)
  Receive Date: 20081117
  Receipt Date: 20081107
  Transmission Date: 20090506
  Serious: Yes (Hospitalization)
  Sender: FDA-Public Use
  Company Number: US-BIOGENIDEC-2008BI028079

PATIENT
  Age: 52 Year
  Sex: Female
  Weight: 49 kg

DRUGS (1)
  1. TYSABRI [Suspect]
     Indication: MULTIPLE SCLEROSIS
     Route: 042
     Dates: start: 20061101

REACTIONS (7)
  - CRYING [None]
  - DEPRESSION [None]
  - HEPATIC ENZYME INCREASED [None]
  - INSOMNIA [None]
  - MENTAL DISORDER [None]
  - MULTIPLE SCLEROSIS [None]
  - SUICIDE ATTEMPT [None]
